FAERS Safety Report 6148305-0 (Version None)
Quarter: 2009Q2

REPORT INFORMATION
  Report Type: 
  Country: None (occurrence: None)
  Receive Date: 20090406
  Receipt Date: 20090319
  Transmission Date: 20091009
  Serious: Yes (Other)
  Sender: FDA-Public Use
  Company Number: 2009S1002605

PATIENT
  Sex: Female

DRUGS (1)
  1. PHOSPHOSODA FLAVOR NOT SPECIFIED [Suspect]
     Indication: COLONOSCOPY
     Dosage: PO
     Route: 048

REACTIONS (5)
  - ASTHENIA [None]
  - DYSPNOEA [None]
  - MALAISE [None]
  - PRURITUS [None]
  - RENAL IMPAIRMENT [None]
